FAERS Safety Report 6780679-X (Version None)
Quarter: 2010Q2

REPORT INFORMATION
  Report Type: 
  Country: None (occurrence: None)
  Receive Date: 20100621
  Receipt Date: 20100610
  Transmission Date: 20101027
  Serious: No
  Sender: FDA-Public Use
  Company Number: US-BIOGENIDEC-2010BI020204

PATIENT
  Sex: Male

DRUGS (2)
  1. TYSABRI [Suspect]
     Indication: MULTIPLE SCLEROSIS
     Route: 042
     Dates: start: 20071022
  2. AVONEX [Concomitant]
     Indication: MULTIPLE SCLEROSIS
     Route: 030
     Dates: start: 19980301

REACTIONS (6)
  - COGNITIVE DISORDER [None]
  - FATIGUE [None]
  - MEMORY IMPAIRMENT [None]
  - PERONEAL NERVE PALSY [None]
  - SECONDARY PROGRESSIVE MULTIPLE SCLEROSIS [None]
  - TREMOR [None]
